FAERS Safety Report 5074252-1 (Version None)
Quarter: 2006Q3

REPORT INFORMATION
  Report Type: 
  Country: None (occurrence: None)
  Receive Date: 20060803
  Receipt Date: 20060721
  Transmission Date: 20061208
  Serious: Yes (Hospitalization, Other)
  Sender: FDA-Public Use
  Company Number: 2005BH000075

PATIENT
  Age: 82 Year
  Sex: Female

DRUGS (2)
  1. GENTAMICIN [Suspect]
     Indication: LIVER ABSCESS
     Dosage: 3.2 MG/KG; EVERY DAY; IV
     Route: 042
  2. CEPHALOTHIN [Concomitant]

REACTIONS (10)
  - HYPOKALAEMIA [None]
  - HYPOMAGNESAEMIA [None]
  - LETHARGY [None]
  - METABOLIC ALKALOSIS [None]
  - MUSCULAR WEAKNESS [None]
  - NOCTURIA [None]
  - PARAESTHESIA [None]
  - POLYURIA [None]
  - PSEUDO-BARTTER SYNDROME [None]
  - TETANY [None]
